FAERS Safety Report 16464702 (Version 2)
Quarter: 2020Q4

REPORT INFORMATION
  Report Type: Spontaneous
  Country: PT (occurrence: PT)
  Receive Date: 20190621
  Receipt Date: 20201207
  Transmission Date: 20210113
  Serious: Yes (Death, Hospitalization, Other)
  Sender: FDA-Public Use
  Company Number: PT-MYLANLABS-2019M1057952

PATIENT
  Age: 67 Year

DRUGS (7)
  1. ZERBAXA [Suspect]
     Active Substance: CEFTOLOZANE SULFATE\TAZOBACTAM SODIUM
     Indication: PNEUMONIA
     Dosage: 2G+1G/ EVERY 8 HOURS
     Dates: start: 2017, end: 201703
  2. TAZOBACTAM [Suspect]
     Active Substance: TAZOBACTAM
     Indication: PRODUCT USED FOR UNKNOWN INDICATION
     Dosage: UNK
  3. AMOXICILLIN/CLAVULANIC ACID [Suspect]
     Active Substance: AMOXICILLIN\CLAVULANIC ACID
     Indication: CARDIAC FAILURE
     Dosage: UNK
  4. CEFEPIME [Concomitant]
     Active Substance: CEFEPIME HYDROCHLORIDE
     Dosage: UNK
     Dates: start: 20170208, end: 20170220
  5. LINEZOLID. [Concomitant]
     Active Substance: LINEZOLID
     Indication: CARDIAC FAILURE
     Dosage: UNK
     Dates: start: 20170129, end: 20170220
  6. PIPERACILLIN AND TAZOBACTAM [Concomitant]
     Active Substance: PIPERACILLIN SODIUM\TAZOBACTAM SODIUM
     Dosage: UNK
     Dates: start: 20170203, end: 20170208
  7. ZERBAXA [Suspect]
     Active Substance: CEFTOLOZANE SULFATE\TAZOBACTAM SODIUM
     Dosage: 1.5 MG (1G+0.5G) EVERY 8 HOURS
     Dates: start: 20170220

REACTIONS (7)
  - Condition aggravated [Fatal]
  - Nosocomial infection [Unknown]
  - Off label use [Fatal]
  - Overdose [Unknown]
  - Pathogen resistance [Unknown]
  - Product use in unapproved indication [Unknown]
  - Septic shock [Unknown]

NARRATIVE: CASE EVENT DATE: 2017
